FAERS Safety Report 13992841 (Version 1)
Quarter: 2017Q3

REPORT INFORMATION
  Report Type: Spontaneous
  Country: BR (occurrence: BR)
  Receive Date: 20170920
  Receipt Date: 20170920
  Transmission Date: 20171128
  Serious: Yes (Hospitalization)
  Sender: FDA-Public Use
  Company Number: BR-BIOMARINAP-BR-2017-115405

PATIENT
  Age: 6 Year
  Sex: Male

DRUGS (3)
  1. VIMIZIM [Suspect]
     Active Substance: ELOSULFASE ALFA
     Indication: MUCOPOLYSACCHARIDOSIS IV
     Dosage: UNK
     Route: 042
     Dates: start: 20141226
  2. CEFTRIAXONE. [Suspect]
     Active Substance: CEFTRIAXONE
     Indication: RESPIRATORY TRACT INFECTION
     Route: 065
  3. HYDROCORTISONE. [Suspect]
     Active Substance: HYDROCORTISONE
     Indication: RESPIRATORY TRACT INFECTION
     Route: 065

REACTIONS (7)
  - Hypersensitivity [Unknown]
  - Rash [Unknown]
  - Respiratory tract infection [Unknown]
  - Abdominal pain [Unknown]
  - Dyspnoea [Unknown]
  - Oedema [Unknown]
  - Cyanosis [Unknown]

NARRATIVE: CASE EVENT DATE: 20170908
